FAERS Safety Report 7030229-8 (Version None)
Quarter: 2010Q4

REPORT INFORMATION
  Report Type: 
  Country: None (occurrence: None)
  Receive Date: 20101006
  Receipt Date: 20100922
  Transmission Date: 20110411
  Serious: Yes (Life-Threatening, Hospitalization)
  Sender: FDA-Public Use
  Company Number: DE-RANBAXY-2009RR-23572

PATIENT
  Age: 48 Year
  Sex: Male
  Weight: 110 kg

DRUGS (6)
  1. IBUPROFEN [Suspect]
     Indication: BURSA REMOVAL
     Dosage: 800 MG, BID
     Route: 048
     Dates: start: 20081023, end: 20081114
  2. ESOMEPRAZOLE [Concomitant]
     Indication: PROPHYLAXIS AGAINST GASTROINTESTINAL ULCER
     Dosage: UNK
     Route: 048
     Dates: start: 20080401
  3. FALITHROM ^HEXAL^ [Concomitant]
     Indication: PULMONARY EMBOLISM
     Dosage: UNK
     Route: 048
     Dates: start: 20060101
  4. RAMIPRIL [Concomitant]
     Indication: HYPERTENSION
     Dosage: UNK
     Route: 048
     Dates: start: 20080101
  5. RANITIC [Concomitant]
     Indication: PROPHYLAXIS AGAINST GASTROINTESTINAL ULCER
     Dosage: UNK
     Route: 048
     Dates: start: 20080401
  6. TRILEPTAL [Concomitant]
     Indication: PARTIAL SEIZURES
     Dosage: UNK
     Route: 048
     Dates: start: 20080601

REACTIONS (2)
  - BRONCHOSPASM [None]
  - DYSPNOEA [None]
